FAERS Safety Report 13315847 (Version 1)
Quarter: 2017Q1

REPORT INFORMATION
  Report Type: Spontaneous
  Country: US (occurrence: US)
  Receive Date: 20170310
  Receipt Date: 20170310
  Transmission Date: 20170428
  Serious: No
  Sender: FDA-Public Use
  Company Number: US-009507513-1703USA004792

PATIENT

DRUGS (1)
  1. DEXAMETHASONE. [Suspect]
     Active Substance: DEXAMETHASONE
     Indication: MENIERE^S DISEASE
     Dosage: CONCENTRATION BETWEEN 4 MG/ML AND 10 MG/ML, INTRATYMPANIC INJECTION AND DIRECT INSTILLATION INTO THE

REACTIONS (1)
  - Product use issue [Unknown]
